FAERS Safety Report 5200731-X (Version None)
Quarter: 2006Q4

REPORT INFORMATION
  Report Type: 
  Country: None (occurrence: None)
  Receive Date: 20061016
  Receipt Date: 20051219
  Transmission Date: 20070319
  Serious: Yes (Disabling, Other)
  Sender: FDA-Public Use
  Company Number: 2005127215

PATIENT
  Age: 85 Year
  Sex: Female
  Weight: 71.6683 kg

DRUGS (7)
  1. GABAPENTIN [Suspect]
     Indication: NEUROPATHY PERIPHERAL
     Dosage: 600 MG (300 MG, 2 IN 1 D)
     Dates: start: 20050625
  2. LIPITOR [Concomitant]
  3. HYDROCHLOROTHIAZIDE (HYDROCHLROTHIAZIDE) [Concomitant]
  4. QUININE SULFATE [Concomitant]
  5. IBUPROFEN [Concomitant]
  6. ATENOLOL [Concomitant]
  7. FOSAMAX [Concomitant]

REACTIONS (1)
  - DEAFNESS [None]
